FAERS Safety Report 18099509 (Version 2)
Quarter: 2020Q3

REPORT INFORMATION
  Report Type: Spontaneous
  Country: US (occurrence: US)
  Receive Date: 20200731
  Receipt Date: 20200819
  Transmission Date: 20201103
  Serious: No
  Sender: FDA-Public Use
  Company Number: US-BAUSCH-BL-2020-021113

PATIENT
  Age: 78 Year
  Sex: Female

DRUGS (3)
  1. REFRESH OPTIVE [Concomitant]
     Active Substance: CARBOXYMETHYLCELLULOSE SODIUM\GLYCERIN
     Indication: PRODUCT USED FOR UNKNOWN INDICATION
  2. REFRESH TEARS [Concomitant]
     Active Substance: CARBOXYMETHYLCELLULOSE SODIUM
     Indication: PRODUCT USED FOR UNKNOWN INDICATION
  3. VYZULTA [Suspect]
     Active Substance: LATANOPROSTENE BUNOD
     Indication: GLAUCOMA
     Dosage: AT BEDTIME
     Route: 047
     Dates: start: 20200628

REACTIONS (7)
  - Nasal discomfort [Unknown]
  - Tongue discolouration [Unknown]
  - Migraine [Unknown]
  - Eye irritation [Not Recovered/Not Resolved]
  - Eye pain [Unknown]
  - Tongue discomfort [Not Recovered/Not Resolved]
  - Therapeutic product effect delayed [Unknown]

NARRATIVE: CASE EVENT DATE: 2020
